FAERS Safety Report 9086995 (Version 1)
Quarter: 2013Q1

REPORT INFORMATION
  Report Type: Report from Study
  Country: CA (occurrence: CA)
  Receive Date: 20130217
  Receipt Date: 20130217
  Transmission Date: 20140127
  Serious: Yes (Hospitalization)
  Sender: FDA-Public Use
  Company Number: CA-JNJFOC-20130205634

PATIENT
  Sex: Female
  Weight: 62 kg

DRUGS (7)
  1. REMICADE [Suspect]
     Indication: RHEUMATOID ARTHRITIS
     Route: 042
  2. DILAUDID [Concomitant]
     Route: 048
  3. IMURAN [Concomitant]
     Route: 048
  4. ACLASTA [Concomitant]
     Route: 042
  5. PARIET [Concomitant]
     Route: 048
  6. IMOVANE [Concomitant]
     Dosage: 0.5
     Route: 048
  7. VITAMIN B12 [Concomitant]
     Route: 065

REACTIONS (1)
  - Hospitalisation [Unknown]
